FAERS Safety Report 22597654 (Version 1)
Quarter: 2023Q2

REPORT INFORMATION
  Report Type: Spontaneous
  Country: HK (occurrence: None)
  Receive Date: 20230614
  Receipt Date: 20230614
  Transmission Date: 20230721
  Serious: Yes (Other)
  Sender: FDA-Public Use
  Company Number: HK-Unichem Pharmaceuticals (USA) Inc-UCM202306-000703

PATIENT
  Age: 14 Year
  Sex: Male

DRUGS (21)
  1. CLONIDINE HYDROCHLORIDE [Suspect]
     Active Substance: CLONIDINE HYDROCHLORIDE
     Indication: Sedation
     Dosage: 0.58 ?G/KG/DOSE
     Route: 048
  2. CLONIDINE HYDROCHLORIDE [Suspect]
     Active Substance: CLONIDINE HYDROCHLORIDE
     Indication: Dystonia
     Route: 048
  3. CLONIDINE HYDROCHLORIDE [Suspect]
     Active Substance: CLONIDINE HYDROCHLORIDE
     Indication: Dyskinesia
  4. MIDAZOLAM [Suspect]
     Active Substance: MIDAZOLAM
     Indication: Sedation
     Dosage: 0.2 MG/KG/HOUR
     Route: 042
  5. MIDAZOLAM [Suspect]
     Active Substance: MIDAZOLAM
     Indication: Dystonia
  6. MIDAZOLAM [Suspect]
     Active Substance: MIDAZOLAM
     Indication: Dyskinesia
  7. MORPHINE [Suspect]
     Active Substance: MORPHINE
     Indication: Sedation
     Dosage: 20 MICROGRAM/KG/HOUR
  8. MORPHINE [Suspect]
     Active Substance: MORPHINE
     Indication: Dystonia
     Route: 048
  9. MORPHINE [Suspect]
     Active Substance: MORPHINE
     Indication: Dyskinesia
  10. KETAMINE [Suspect]
     Active Substance: KETAMINE
     Indication: Sedation
     Dosage: 5 MICROGRAM/KG/MINUTE
  11. KETAMINE [Suspect]
     Active Substance: KETAMINE
     Indication: Dyskinesia
  12. KETAMINE [Suspect]
     Active Substance: KETAMINE
     Indication: Dystonia
  13. CHLORAL HYDRATE [Suspect]
     Active Substance: CHLORAL HYDRATE
     Indication: Sedation
     Dosage: 23 MG/KG/DOSE
     Route: 048
  14. CHLORAL HYDRATE [Suspect]
     Active Substance: CHLORAL HYDRATE
     Indication: Dyskinesia
  15. CHLORAL HYDRATE [Suspect]
     Active Substance: CHLORAL HYDRATE
     Indication: Dystonia
  16. DIAZEPAM [Suspect]
     Active Substance: DIAZEPAM
     Indication: Sedation
     Dosage: UNKNOWN
     Route: 048
  17. BACLOFEN [Concomitant]
     Active Substance: BACLOFEN
     Indication: Product used for unknown indication
     Dosage: UNKNOWN
  18. TETRABENAZINE [Concomitant]
     Active Substance: TETRABENAZINE
     Indication: Product used for unknown indication
     Dosage: UNKNOWN
  19. CARBAMAZEPINE [Concomitant]
     Active Substance: CARBAMAZEPINE
     Indication: Product used for unknown indication
     Dosage: UNKNOWN
  20. CLOBAZAM [Concomitant]
     Active Substance: CLOBAZAM
     Indication: Product used for unknown indication
     Dosage: UNKNOWN
  21. FUROSEMIDE [Concomitant]
     Active Substance: FUROSEMIDE
     Indication: Hypervolaemia
     Dosage: 1.2 MG/KG/HOUR

REACTIONS (5)
  - Sedation complication [Recovered/Resolved]
  - Hypoventilation [Recovered/Resolved]
  - Respiratory failure [Recovered/Resolved]
  - Overdose [Unknown]
  - Product use in unapproved indication [Unknown]
